FAERS Safety Report 7960897-5 (Version None)
Quarter: 2011Q4

REPORT INFORMATION
  Report Type: 
  Country: None (occurrence: None)
  Receive Date: 20111201
  Receipt Date: 20111115
  Transmission Date: 20120403
  Serious: Yes (Death)
  Sender: FDA-Public Use
  Company Number: 2009-070

PATIENT
  Age: 81 Year
  Sex: Male

DRUGS (11)
  1. SINGULAIR [Concomitant]
  2. MEDROXYPROGESTERONE [Concomitant]
  3. MORPHINE (MORPHINE) SOLUTION (EXCEPT SYRUP) [Concomitant]
  4. POTASSIUM CHLORIDE [Concomitant]
  5. ACETAMINOPHEN [Concomitant]
  6. ASPIRIN [Concomitant]
  7. FAZACLO ODT [Suspect]
     Dosage: 25 MG, QD, ORAL
     Route: 048
     Dates: start: 20080327, end: 20090409
  8. IPRATROPIUM (IPRATROPIUM) SOLUTION (EXCEPT SYRUP) [Concomitant]
  9. ALBUTEROL [Concomitant]
  10. TRANSDERM SCOP (HYOSCINE) PATCH [Concomitant]
  11. PROSOURCE PROTEIN (PROSOURCE PROTEIN) POWDER (EXCEPT [DPO]) [Concomitant]

REACTIONS (1)
  - DEMENTIA ALZHEIMER'S TYPE [None]
